FAERS Safety Report 10676356 (Version 1)
Quarter: 2014Q4

REPORT INFORMATION
  Report Type: Spontaneous
  Country: JP (occurrence: JP)
  Receive Date: 20141226
  Receipt Date: 20141226
  Transmission Date: 20150529
  Serious: Yes (Death)
  Sender: FDA-Public Use
  Company Number: JP-GE HEALTHCARE MEDICAL DIAGNOSTICS-MSTR-PR-1412S-0033

PATIENT
  Age: 80 Year
  Sex: Male

DRUGS (4)
  1. METASTRON [Suspect]
     Active Substance: STRONTIUM CHLORIDE SR-89
     Indication: METASTASES TO BONE
  2. METASTRON [Suspect]
     Active Substance: STRONTIUM CHLORIDE SR-89
     Indication: METASTATIC PAIN
  3. METASTRON [Suspect]
     Active Substance: STRONTIUM CHLORIDE SR-89
     Indication: LUNG NEOPLASM MALIGNANT
     Dates: start: 20141218, end: 20141218
  4. METASTRON [Suspect]
     Active Substance: STRONTIUM CHLORIDE SR-89
     Indication: THERAPEUTIC PROCEDURE

REACTIONS (1)
  - Cardiac failure [Fatal]

NARRATIVE: CASE EVENT DATE: 20141220
